FAERS Safety Report 25903146 (Version 1)
Quarter: 2025Q4

REPORT INFORMATION
  Report Type: Spontaneous
  Country: US (occurrence: US)
  Receive Date: 20251009
  Receipt Date: 20251009
  Transmission Date: 20260117
  Serious: Yes (Life-Threatening, Hospitalization, Other)
  Sender: GENBIOPRO
  Company Number: US-GENBIOPRO-2025GEN00011

PATIENT
  Age: 29 Year
  Sex: Female

DRUGS (1)
  1. MISOPROSTOL [Suspect]
     Active Substance: MISOPROSTOL
     Dosage: UNK
     Route: 065

REACTIONS (6)
  - Coronary artery dissection [Recovered/Resolved]
  - Acute myocardial infarction [Recovered/Resolved]
  - Cardiac arrest [Recovered/Resolved]
  - Pulseless electrical activity [Recovered/Resolved]
  - Seizure [Recovered/Resolved]
  - Unresponsive to stimuli [Recovered/Resolved]

NARRATIVE: CASE EVENT DATE: 20240101
